FAERS Safety Report 11451568 (Version 1)
Quarter: 2015Q3

REPORT INFORMATION
  Report Type: Spontaneous
  Country: CA (occurrence: CA)
  Receive Date: 20150903
  Receipt Date: 20150903
  Transmission Date: 20151125
  Serious: Yes (Hospitalization)
  Sender: FDA-Public Use
  Company Number: CA-TEVA-590827ACC

PATIENT
  Age: 80 Year
  Sex: Female

DRUGS (14)
  1. FLEET ENEMA MINERAL OIL [Concomitant]
  2. SENNOSIDES. [Concomitant]
     Active Substance: SENNOSIDES
  3. ACETAMINOPHEN. [Concomitant]
     Active Substance: ACETAMINOPHEN
  4. VENLAFAXINE XR [Suspect]
     Active Substance: VENLAFAXINE HYDROCHLORIDE
     Indication: DEPRESSION
     Dosage: 75 MILLIGRAM DAILY;
     Route: 048
  5. METFORMIN [Concomitant]
     Active Substance: METFORMIN HYDROCHLORIDE
  6. LACTULOSE SYRUP [Concomitant]
  7. RABEPRAZOLE [Concomitant]
     Active Substance: RABEPRAZOLE
  8. HYDROCORTISONE ACETATE CREAM USP [Concomitant]
  9. PEG 3350 [Concomitant]
     Active Substance: POLYETHYLENE GLYCOL 3350
     Route: 048
  10. CLOTRIMAZOLE CREAM USP 1% [Concomitant]
  11. BISACODYL. [Concomitant]
     Active Substance: BISACODYL
  12. LEVOTHYROXINE. [Concomitant]
     Active Substance: LEVOTHYROXINE
  13. TRAZODONE [Concomitant]
     Active Substance: TRAZODONE HYDROCHLORIDE
  14. ZINC OXIDE CREAM [Concomitant]

REACTIONS (1)
  - Torticollis [Recovered/Resolved]
